FAERS Safety Report 9169335 (Version 3)
Quarter: 2013Q4

REPORT INFORMATION
  Report Type: Report from Study
  Country: ES (occurrence: ES)
  Receive Date: 20130318
  Receipt Date: 20131025
  Transmission Date: 20140711
  Serious: Yes (Other)
  Sender: FDA-Public Use
  Company Number: ES-ACTELION-A-CH2013-80580

PATIENT
  Age: 15 Year
  Sex: Male
  Weight: 50 kg

DRUGS (2)
  1. ZAVESCA [Suspect]
     Indication: NIEMANN-PICK DISEASE
     Dosage: 300 MG, BID
     Route: 048
     Dates: start: 20080228
  2. ZAVESCA [Suspect]
     Dosage: UNK MG, UNK
     Route: 048

REACTIONS (5)
  - Convulsion [Not Recovered/Not Resolved]
  - Condition aggravated [Unknown]
  - Tremor [Not Recovered/Not Resolved]
  - Diarrhoea [Not Recovered/Not Resolved]
  - Weight decreased [Unknown]
